FAERS Safety Report 7375465-6 (Version None)
Quarter: 2011Q1

REPORT INFORMATION
  Report Type: 
  Country: None (occurrence: None)
  Receive Date: 20110325
  Receipt Date: 20110316
  Transmission Date: 20110831
  Serious: Yes (Death, Other)
  Sender: FDA-Public Use
  Company Number: CO-MILLENNIUM PHARMACEUTICALS, INC.-2011-01121

PATIENT

DRUGS (3)
  1. VELCADE [Suspect]
     Indication: MULTIPLE MYELOMA
     Dosage: 1.3 MG/M2, UNK
  2. THALIDOMIDE [Concomitant]
     Indication: MULTIPLE MYELOMA
     Dosage: 100 MG, UNK
  3. DEXAMETHASONE [Concomitant]
     Indication: MULTIPLE MYELOMA
     Dosage: 40 MG, UNK

REACTIONS (2)
  - DEATH [None]
  - PNEUMONIA [None]
